FAERS Safety Report 4681760-1 (Version None)
Quarter: 2005Q2

REPORT INFORMATION
  Report Type: 
  Country: None (occurrence: None)
  Receive Date: 20050603
  Receipt Date: 20041123
  Transmission Date: 20051028
  Serious: Yes (Hospitalization, Other)
  Sender: FDA-Public Use
  Company Number: US-ABBOTT-04P-163-0281338-00

PATIENT
  Sex: Female
  Weight: 53.572 kg

DRUGS (2)
  1. SYNTHROID [Suspect]
     Indication: THYROIDITIS
     Route: 048
     Dates: start: 19730501, end: 19920101
  2. SYNTHROID [Suspect]
     Route: 048
     Dates: start: 19920101, end: 19920101

REACTIONS (12)
  - BLOOD POTASSIUM DECREASED [None]
  - BLOOD THYROID STIMULATING HORMONE DECREASED [None]
  - BREAST CANCER [None]
  - DIZZINESS [None]
  - FIBROADENOMA OF BREAST [None]
  - INTRADUCTAL PAPILLOMA OF BREAST [None]
  - MEDICATION ERROR [None]
  - MENOMETRORRHAGIA [None]
  - OSTEOPOROSIS [None]
  - OVERDOSE [None]
  - POLLAKIURIA [None]
  - TREMOR [None]
